FAERS Safety Report 8886801 (Version 3)
Quarter: 2013Q1

REPORT INFORMATION
  Report Type: Spontaneous
  Country: FI (occurrence: FI)
  Receive Date: 20121105
  Receipt Date: 20130104
  Transmission Date: 20140127
  Serious: Yes (Life-Threatening, Hospitalization)
  Sender: FDA-Public Use
  Company Number: FI-PFIZER INC-2012272463

PATIENT
  Age: 15 Year
  Sex: Female
  Weight: 70 kg

DRUGS (2)
  1. ZELDOX [Suspect]
     Dosage: 80 MG, UNK
     Route: 048
     Dates: start: 20121021, end: 20121021
  2. CAFFEINE [Concomitant]
     Dosage: 100 MG, UNK
     Route: 048
     Dates: start: 20121020, end: 20121021

REACTIONS (11)
  - Intentional drug misuse [Recovered/Resolved]
  - Incorrect route of drug administration [Recovered/Resolved]
  - Musculoskeletal stiffness [Recovered/Resolved]
  - Dysarthria [Recovered/Resolved]
  - Tongue disorder [Recovered/Resolved]
  - Swollen tongue [Recovered/Resolved]
  - Dysphagia [Recovered/Resolved]
  - Dyskinesia [Recovered/Resolved]
  - Dyskinesia [Recovered/Resolved]
  - Angioedema [Recovered/Resolved]
  - Poisoning [Recovered/Resolved]
